FAERS Safety Report 23750488 (Version 2)
Quarter: 2024Q2

REPORT INFORMATION
  Report Type: Report from Study
  Country: CA (occurrence: CA)
  Receive Date: 20240417
  Receipt Date: 20240510
  Transmission Date: 20240716
  Serious: Yes (Other)
  Sender: FDA-Public Use
  Company Number: CA-CELLTRION INC.-2024CA008899

PATIENT

DRUGS (14)
  1. YUFLYMA [Suspect]
     Active Substance: ADALIMUMAB-AATY
     Indication: Rheumatoid arthritis
     Dosage: 40 MG 2 WEEKS
     Route: 058
     Dates: start: 20231201
  2. YUFLYMA [Suspect]
     Active Substance: ADALIMUMAB-AATY
     Dosage: 40 MG 2 WEEKS
     Route: 058
     Dates: start: 20240405
  3. CELEBREX [Concomitant]
     Active Substance: CELECOXIB
     Dosage: 200MG ONCE DAILY
  4. SULFASALAZINE [Concomitant]
     Active Substance: SULFASALAZINE
     Dosage: 500MG 3 TABLETS TWICE DAILY
  5. TAMOXIFEN [Concomitant]
     Active Substance: TAMOXIFEN
     Dosage: 20MG ONE TABLET DAILY
  6. LEVOTHYROXINE [Concomitant]
     Active Substance: LEVOTHYROXINE\LEVOTHYROXINE SODIUM
     Dosage: 75MG ONCE DAILY
  7. SYNTHROID [Concomitant]
     Active Substance: LEVOTHYROXINE SODIUM
     Dosage: 75MG ONCE DAILY
  8. VITAMIN B COMPLEX [Concomitant]
     Active Substance: CYANOCOBALAMIN\DEXPANTHENOL\NIACINAMIDE\PYRIDOXINE HYDROCHLORIDE\RIBOFLAVIN 5^-PHOSPHATE SODIUM\THIA
  9. VITAMIN D NOS [Concomitant]
     Active Substance: VITAMIN D NOS
     Dosage: 2000IU
  10. CALCIUM [Concomitant]
     Active Substance: CALCIUM
     Dosage: DAILY
  11. MAGNESIUM [Concomitant]
     Active Substance: MAGNESIUM
  12. VITAMINS [Concomitant]
     Active Substance: VITAMINS
  13. CLOPIDOGREL [Concomitant]
     Active Substance: CLOPIDOGREL BISULFATE
     Indication: Transient ischaemic attack
     Dosage: 75 MG 1 TAB DAILY
     Dates: start: 20231207
  14. IVABRADINE [Concomitant]
     Active Substance: IVABRADINE
     Indication: Palpitations
     Dosage: 5 MG 1 TAB TWICE DAILY
     Dates: start: 20240226

REACTIONS (1)
  - Rheumatoid arthritis [Not Recovered/Not Resolved]

NARRATIVE: CASE EVENT DATE: 20240101
